FAERS Safety Report 9188792 (Version 2)
Quarter: 2013Q2

REPORT INFORMATION
  Report Type: Spontaneous
  Country: US (occurrence: US)
  Receive Date: 20130326
  Receipt Date: 20130624
  Transmission Date: 20140414
  Serious: Yes (Death, Life-Threatening, Hospitalization, Other)
  Sender: FDA-Public Use
  Company Number: US-FRI-1000043555

PATIENT
  Age: 49 Year
  Sex: Male
  Weight: 77.3 kg

DRUGS (3)
  1. VIIBRYD [Suspect]
     Indication: DEPRESSION
     Dosage: FROM 10 MG TO 40 MG
  2. VIIBRYD [Suspect]
     Indication: SCHIZOPHRENIA
  3. XALATAN [Concomitant]
     Indication: GLAUCOMA

REACTIONS (9)
  - Cerebral haemorrhage [Fatal]
  - Grand mal convulsion [Fatal]
  - Musculoskeletal stiffness [Not Recovered/Not Resolved]
  - Abasia [Not Recovered/Not Resolved]
  - Dysphagia [Not Recovered/Not Resolved]
  - Incontinence [Not Recovered/Not Resolved]
  - Feeling hot [Not Recovered/Not Resolved]
  - Hyperhidrosis [Not Recovered/Not Resolved]
  - Pyrexia [Not Recovered/Not Resolved]
